FAERS Safety Report 4277145-2 (Version None)
Quarter: 2004Q1

REPORT INFORMATION
  Report Type: 
  Country: None (occurrence: None)
  Receive Date: 20040120
  Receipt Date: 20040109
  Transmission Date: 20041129
  Serious: Yes (Other)
  Sender: FDA-Public Use
  Company Number: FR-JNJFOC-20031003844

PATIENT
  Age: 35 Year
  Sex: Male

DRUGS (4)
  1. RISPERDAL [Suspect]
     Indication: DELUSION
     Dosage: 4 MG, 2 IN 1 DAY, ORAL
     Route: 048
     Dates: start: 20031011, end: 20031016
  2. RIVOTRIL (CLONAZEPAM) SOLUTION [Concomitant]
  3. THERALENE (ALIMEMAZINE TARTRATE) SOLUTION [Concomitant]
  4. HEPT-A-MYL (HEPTAMINOL HYDROCHLORIDE) SOLUTION [Concomitant]

REACTIONS (2)
  - LEUKOPENIA [None]
  - NEUTROPENIA [None]
